FAERS Safety Report 5586916-1 (Version None)
Quarter: 2008Q1

REPORT INFORMATION
  Report Type: 
  Country: None (occurrence: None)
  Receive Date: 20080108
  Receipt Date: 20080108
  Transmission Date: 20080703
  Serious: Yes (Other)
  Sender: FDA-Public Use
  Company Number: None

PATIENT
  Age: 59 Year
  Sex: Female
  Weight: 90.7194 kg

DRUGS (1)
  1. CIPROFLOXACIN [Suspect]
     Indication: BRONCHITIS
     Dosage: 1000MG 500 TWICE A DAY PO
     Route: 048

REACTIONS (3)
  - DIZZINESS [None]
  - HYPERHIDROSIS [None]
  - STOMACH DISCOMFORT [None]
